FAERS Safety Report 8860203 (Version 1)
Quarter: 2012Q4

REPORT INFORMATION
  Report Type: 
  Country: US (occurrence: US)
  Receive Date: 20121025
  Receipt Date: 20121025
  Transmission Date: 20130627
  Serious: Yes (Death, Hospitalization, Other)
  Sender: FDA-Public Use
  Company Number: US-ASTELLAS-2012US009754

PATIENT
  Age: 64 None
  Sex: Female

DRUGS (6)
  1. PROGRAF [Suspect]
     Indication: RENAL TRANSPLANT
     Dosage: 0.5 mg, Q12 hours
     Route: 048
     Dates: start: 20081227, end: 201209
  2. PROGRAF [Suspect]
     Dosage: UNK
     Route: 048
     Dates: start: 201209, end: 20120928
  3. ABRAXANE [Suspect]
     Indication: BREAST CANCER
     Dosage: UNK
     Route: 065
  4. HERCEPTIN [Suspect]
     Indication: BREAST CANCER METASTATIC
     Dosage: UNK
     Route: 065
  5. PERTUZUMAB [Suspect]
     Indication: BREAST CANCER METASTATIC
     Dosage: UNK
     Route: 065
  6. PREDNISONE [Concomitant]
     Indication: PRODUCT USED FOR UNKNOWN INDICATION
     Dosage: UNK
     Route: 065

REACTIONS (22)
  - Death [Fatal]
  - Adverse drug reaction [Unknown]
  - Odynophagia [Unknown]
  - Stomatitis [Unknown]
  - Oral candidiasis [Unknown]
  - Acute respiratory distress syndrome [Unknown]
  - Renal failure acute [Unknown]
  - Renal tubular necrosis [Unknown]
  - Metabolic acidosis [Unknown]
  - Sepsis [Unknown]
  - Anaemia [Unknown]
  - Renal failure acute [Unknown]
  - Pneumonia bacterial [Unknown]
  - Neutropenia [Unknown]
  - Septic shock [Unknown]
  - Oesophagitis [Unknown]
  - Immunosuppressant drug level decreased [Unknown]
  - Thyroid disorder [Unknown]
  - Oesophageal ulcer [Unknown]
  - Peptic ulcer [Unknown]
  - Osteoporosis [Unknown]
  - Ulcer [Unknown]
